FAERS Safety Report 9760401 (Version 1)
Quarter: 2013Q4

REPORT INFORMATION
  Report Type: Spontaneous
  Country: US (occurrence: US)
  Receive Date: 20131216
  Receipt Date: 20131216
  Transmission Date: 20140711
  Serious: No
  Sender: FDA-Public Use
  Company Number: US-PFIZER INC-2013358407

PATIENT
  Sex: Female

DRUGS (1)
  1. EFFEXOR XR [Suspect]
     Dosage: UNK

REACTIONS (5)
  - Eye movement disorder [Unknown]
  - Eye pain [Unknown]
  - Discomfort [Unknown]
  - Movement disorder [Unknown]
  - Dyskinesia [Unknown]
